FAERS Safety Report 5248126-7 (Version None)
Quarter: 2007Q1

REPORT INFORMATION
  Report Type: 
  Country: None (occurrence: None)
  Receive Date: 20070227
  Receipt Date: 20060202
  Transmission Date: 20070707
  Serious: No
  Sender: FDA-Public Use
  Company Number: US-BRISTOL-MYERS SQUIBB COMPANY-13259940

PATIENT
  Age: 49 Year
  Sex: Female
  Weight: 121 kg

DRUGS (6)
  1. GLUCOPHAGE [Suspect]
     Indication: DIABETES MELLITUS
  2. ZOCOR [Concomitant]
  3. HYZAAR [Concomitant]
     Dosage: DOSAGE FORM = 100/25 MG
  4. AMARYL [Concomitant]
  5. ASPIRIN [Concomitant]
  6. COZAAR [Concomitant]

REACTIONS (3)
  - ACCIDENTAL OVERDOSE [None]
  - BLOOD GLUCOSE INCREASED [None]
  - DRUG DISPENSING ERROR [None]
